FAERS Safety Report 19651025 (Version 2)
Quarter: 2024Q2

REPORT INFORMATION
  Report Type: Other
  Country: CO (occurrence: None)
  Receive Date: 20210802
  Receipt Date: 20240507
  Transmission Date: 20240716
  Serious: Yes (Hospitalization)
  Sender: FDA-Public Use
  Company Number: CO-ROCHE-2484244

PATIENT
  Sex: Male

DRUGS (1)
  1. XELODA [Suspect]
     Active Substance: CAPECITABINE
     Indication: Product used for unknown indication
     Route: 048

REACTIONS (8)
  - Blood pressure decreased [Unknown]
  - Irregular breathing [Unknown]
  - Escherichia bacteraemia [Unknown]
  - Hepatic infection bacterial [Unknown]
  - Pneumonia escherichia [Unknown]
  - Illness [Unknown]
  - Metastases to liver [Unknown]
  - Metastases to lung [Unknown]
